FAERS Safety Report 5571301-9 (Version None)
Quarter: 2007Q4

REPORT INFORMATION
  Report Type: 
  Country: None (occurrence: None)
  Receive Date: 20071221
  Receipt Date: 20070613
  Transmission Date: 20080405
  Serious: Yes (Other)
  Sender: FDA-Public Use
  Company Number: A0651972A

PATIENT
  Age: 72 Year
  Sex: Male

DRUGS (6)
  1. FLUTICASONE PROPIONATE [Suspect]
     Indication: MULTIPLE ALLERGIES
     Dosage: 2SPR PER DAY
     Route: 045
     Dates: start: 20050101, end: 20070401
  2. ZYRTEC [Concomitant]
  3. FLOMAX [Concomitant]
  4. ASPIRIN [Concomitant]
  5. VITAMIN [Concomitant]
  6. ADVIL LIQUI-GELS [Concomitant]

REACTIONS (3)
  - OPEN ANGLE GLAUCOMA [None]
  - OPTIC NERVE CUPPING [None]
  - VISUAL FIELD DEFECT [None]
